FAERS Safety Report 4417168-3 (Version None)
Quarter: 2004Q3

REPORT INFORMATION
  Report Type: 
  Country: None (occurrence: None)
  Receive Date: 20040802
  Receipt Date: 20040719
  Transmission Date: 20050211
  Serious: Yes (Other)
  Sender: FDA-Public Use
  Company Number: HQWYE357022JUL04

PATIENT
  Age: 68 Year
  Sex: Female

DRUGS (1)
  1. PREMPRO [Suspect]

REACTIONS (3)
  - CERVIX CARCINOMA [None]
  - OVARIAN CANCER [None]
  - UTERINE CANCER [None]
